FAERS Safety Report 7624352-4 (Version None)
Quarter: 2011Q3

REPORT INFORMATION
  Report Type: 
  Country: None (occurrence: None)
  Receive Date: 20110720
  Receipt Date: 20110708
  Transmission Date: 20111222
  Serious: Yes (Hospitalization)
  Sender: FDA-Public Use
  Company Number: ES-ELI_LILLY_AND_COMPANY-ES201106005354

PATIENT
  Sex: Female
  Weight: 43 kg

DRUGS (8)
  1. LORAZEPAM [Concomitant]
     Indication: SLEEP DISORDER
     Dosage: UNK, QD
     Route: 048
  2. ANASMA [Concomitant]
     Indication: ASTHMA
     Dosage: UNK, BID
     Route: 055
  3. NERGADAN [Concomitant]
     Indication: BLOOD CHOLESTEROL INCREASED
     Dosage: 20 MG, QD
     Route: 048
  4. SPIRIVA [Concomitant]
     Indication: ASTHMA
     Dosage: UNK, QD
     Route: 055
  5. FORTEO [Suspect]
     Indication: OSTEOPOROSIS
     Dosage: 20 UG, QD
     Route: 058
     Dates: start: 20101113
  6. OMEPRAZOLE [Concomitant]
     Indication: GASTROINTESTINAL DISORDER
     Dosage: 20 MG, QD
     Route: 048
  7. CITALOPRAM HYDROBROMIDE [Concomitant]
     Indication: ANTIDEPRESSANT THERAPY
     Dosage: 10 MG, QD
     Route: 048
  8. COZAAR [Concomitant]
     Indication: HYPERTENSION
     Dosage: 100 MG, QD
     Route: 048

REACTIONS (2)
  - GALLBLADDER OPERATION [None]
  - GENERAL PHYSICAL HEALTH DETERIORATION [None]
